FAERS Safety Report 7139549-X (Version None)
Quarter: 2010Q4

REPORT INFORMATION
  Report Type: 
  Country: None (occurrence: None)
  Receive Date: 20101206
  Receipt Date: 20101201
  Transmission Date: 20110411
  Serious: Yes (Hospitalization, Other)
  Sender: FDA-Public Use
  Company Number: GB-MERCK-1012GBR00019

PATIENT
  Age: 38 Year
  Sex: Female

DRUGS (2)
  1. INVANZ [Suspect]
     Indication: ASTHMA
     Route: 042
     Dates: start: 20101111, end: 20101111
  2. IMIPENEM [Concomitant]
     Route: 042

REACTIONS (5)
  - COLD SWEAT [None]
  - EYE SWELLING [None]
  - OEDEMA PERIPHERAL [None]
  - PALLOR [None]
  - RHINORRHOEA [None]
